FAERS Safety Report 21168011 (Version 3)
Quarter: 2022Q3

REPORT INFORMATION
  Report Type: Spontaneous
  Country: RU (occurrence: RU)
  Receive Date: 20220803
  Receipt Date: 20220817
  Transmission Date: 20221027
  Serious: Yes (Other)
  Sender: FDA-Public Use
  Company Number: RU-NOVARTISPH-NVSC2022RU172197

PATIENT
  Age: 30 Year
  Sex: Female

DRUGS (7)
  1. CEFTRIAXONE SODIUM [Suspect]
     Active Substance: CEFTRIAXONE SODIUM
     Indication: Antibiotic therapy
     Dosage: 1 DOSAGE FORM, QD
     Route: 030
     Dates: start: 20200522, end: 20200526
  2. AZITHROMYCIN [Suspect]
     Active Substance: AZITHROMYCIN
     Indication: Antibiotic therapy
     Dosage: 500 MG, QD
     Route: 041
     Dates: start: 20200522, end: 20200525
  3. ENOXAPARIN SODIUM [Suspect]
     Active Substance: ENOXAPARIN SODIUM
     Indication: Anticoagulant therapy
     Dosage: 0.4 G, QD
     Route: 058
     Dates: start: 20200522
  4. DEXAMETHASONE [Suspect]
     Active Substance: DEXAMETHASONE
     Indication: Prophylaxis
     Dosage: 6 MG, BID
     Route: 042
     Dates: start: 20200522, end: 20200526
  5. NIFEDIPINE [Suspect]
     Active Substance: NIFEDIPINE
     Indication: Pregnancy
     Dosage: 1 DOSAGE FORM, BID
     Route: 065
  6. UTROGESTAN [Suspect]
     Active Substance: PROGESTERONE
     Indication: Pregnancy
     Dosage: 200 MG, QD (AT BEDTIME)
     Route: 065
     Dates: start: 20200522, end: 20200605
  7. METOPROLOL [Suspect]
     Active Substance: METOPROLOL
     Indication: Tachycardia
     Dosage: 1/4 TABLET
     Route: 065

REACTIONS (3)
  - Stillbirth [Unknown]
  - Premature labour [Unknown]
  - Maternal exposure during pregnancy [Unknown]
